FAERS Safety Report 9976012 (Version 2)
Quarter: 2014Q2

REPORT INFORMATION
  Report Type: Spontaneous
  Country: US (occurrence: US)
  Receive Date: 20140306
  Receipt Date: 20140403
  Transmission Date: 20141212
  Serious: No
  Sender: FDA-Public Use
  Company Number: US-009507513-1403USA001339

PATIENT
  Sex: Male

DRUGS (3)
  1. REBETOL [Suspect]
     Indication: HEPATITIS C
     Dosage: UNK, BID
     Route: 048
     Dates: start: 20120901, end: 20130201
  2. TELAPREVIR [Suspect]
     Indication: HEPATITIS C
     Dosage: UNK, TID
     Route: 048
     Dates: start: 20120901, end: 20130201
  3. PEGASYS [Suspect]
     Indication: HEPATITIS C
     Dosage: FREQUENCY: Q7DAYS
     Route: 058
     Dates: start: 20120901, end: 20130202

REACTIONS (3)
  - Hepatitis C RNA increased [Unknown]
  - Drug ineffective [Unknown]
  - Therapeutic response decreased [Unknown]
